FAERS Safety Report 9551366 (Version 1)
Quarter: 2013Q3

REPORT INFORMATION
  Report Type: Spontaneous
  Country: US (occurrence: None)
  Receive Date: 20130923
  Receipt Date: 20130923
  Transmission Date: 20140515
  Serious: Yes (Other)
  Sender: FDA-Public Use
  Company Number: None

PATIENT
  Age: 83 Year
  Sex: Female
  Weight: 68.2 kg

DRUGS (1)
  1. DOXYCYCLINE [Suspect]
     Indication: ARTHROPOD BITE
     Dosage: 1 CAPSULE,  2 X DAY, 10 DAYS
     Route: 048
     Dates: start: 20130830, end: 20130901

REACTIONS (6)
  - Headache [None]
  - Arthralgia [None]
  - Myalgia [None]
  - Gait disturbance [None]
  - Condition aggravated [None]
  - Systemic lupus erythematosus [None]
